FAERS Safety Report 6124112-X (Version None)
Quarter: 2009Q1

REPORT INFORMATION
  Report Type: 
  Country: None (occurrence: None)
  Receive Date: 20090319
  Receipt Date: 20090304
  Transmission Date: 20090719
  Serious: Yes (Death, Other)
  Sender: FDA-Public Use
  Company Number: FR-ROCHE-620963

PATIENT
  Sex: Male

DRUGS (3)
  1. CELLCEPT [Suspect]
     Route: 048
     Dates: start: 20080401
  2. CELLCEPT [Suspect]
     Route: 048
     Dates: end: 20080501
  3. CELLCEPT [Suspect]
     Route: 048
     Dates: end: 20080901

REACTIONS (3)
  - AORTIC ANEURYSM RUPTURE [None]
  - CYTOLYTIC HEPATITIS [None]
  - HEPATIC ENZYME INCREASED [None]
